FAERS Safety Report 14476043 (Version 3)
Quarter: 2018Q1

REPORT INFORMATION
  Report Type: Spontaneous
  Country: US (occurrence: US)
  Receive Date: 20180201
  Receipt Date: 20180212
  Transmission Date: 20180509
  Serious: Yes (Other)
  Sender: FDA-Public Use
  Company Number: US-PFIZER INC-2018036664

PATIENT
  Age: 4 Year
  Sex: Male
  Weight: 37.19 kg

DRUGS (7)
  1. QUILLIVANT XR [Suspect]
     Active Substance: METHYLPHENIDATE HYDROCHLORIDE
     Indication: PARANOIA
     Dosage: 12 ML, 1X/DAY
     Route: 048
  2. BENADRYL [Concomitant]
     Active Substance: DIPHENHYDRAMINE HYDROCHLORIDE
     Indication: HYPERSENSITIVITY
     Dosage: 15 MG, 1X/DAY [AT NIGHT]
     Route: 048
     Dates: start: 201708
  3. ZYRTEC [Concomitant]
     Active Substance: CETIRIZINE HYDROCHLORIDE
     Indication: HYPERSENSITIVITY
     Dosage: UNK UNK, AS NEEDED  [ONCE A DAY]
     Route: 048
     Dates: start: 201708
  4. QUILLIVANT XR [Suspect]
     Active Substance: METHYLPHENIDATE HYDROCHLORIDE
     Indication: DRUG REACTION WITH EOSINOPHILIA AND SYSTEMIC SYMPTOMS
     Dosage: TEASPOON
     Route: 048
     Dates: start: 2016
  5. QUILLIVANT XR [Suspect]
     Active Substance: METHYLPHENIDATE HYDROCHLORIDE
     Indication: ATTENTION DEFICIT/HYPERACTIVITY DISORDER
     Dosage: HALF TEASPOON
     Route: 048
     Dates: start: 2014
  6. QUILLIVANT XR [Suspect]
     Active Substance: METHYLPHENIDATE HYDROCHLORIDE
     Indication: SENSORY PROCESSING DISORDER
  7. QUILLIVANT XR [Suspect]
     Active Substance: METHYLPHENIDATE HYDROCHLORIDE
     Indication: AUTISM SPECTRUM DISORDER

REACTIONS (9)
  - Crying [Unknown]
  - Headache [Unknown]
  - Abnormal behaviour [Unknown]
  - Aggression [Unknown]
  - Product use issue [Recovered/Resolved]
  - Suicidal ideation [Unknown]
  - Drug dose omission [Unknown]
  - Anxiety [Unknown]
  - Paranoia [Unknown]

NARRATIVE: CASE EVENT DATE: 2014
